FAERS Safety Report 7673004-3 (Version None)
Quarter: 2011Q3

REPORT INFORMATION
  Report Type: 
  Country: None (occurrence: None)
  Receive Date: 20110809
  Receipt Date: 20110805
  Transmission Date: 20111222
  Serious: Yes (Life-Threatening, Other)
  Sender: FDA-Public Use
  Company Number: US-ASTRAZENECA-2011SE46935

PATIENT
  Age: 34 Year
  Sex: Male
  Weight: 74.8 kg

DRUGS (2)
  1. CLARITIN DERIVATIVE [Concomitant]
  2. NEXIUM [Suspect]
     Indication: GASTROOESOPHAGEAL REFLUX DISEASE
     Route: 048
     Dates: start: 20090101

REACTIONS (2)
  - PHARYNGEAL OEDEMA [None]
  - DRUG HYPERSENSITIVITY [None]
